FAERS Safety Report 5629963-3 (Version None)
Quarter: 2008Q1

REPORT INFORMATION
  Report Type: 
  Country: None (occurrence: None)
  Receive Date: 20080218
  Receipt Date: 20080207
  Transmission Date: 20080703
  Serious: Yes (Other)
  Sender: FDA-Public Use
  Company Number: DE-ROCHE-547429

PATIENT
  Sex: Female

DRUGS (1)
  1. ROCALTROL [Suspect]
     Indication: THYROID DISORDER
     Dosage: OTHER INDICATION: PARATHYROID GLAND SURGERY
     Route: 048
     Dates: start: 20080205

REACTIONS (2)
  - CONVULSION [None]
  - DRUG EFFECT DECREASED [None]
